FAERS Safety Report 8227730-8 (Version None)
Quarter: 2012Q1

REPORT INFORMATION
  Report Type: 
  Country: None (occurrence: None)
  Receive Date: 20120322
  Receipt Date: 20120319
  Transmission Date: 20120608
  Serious: Yes (Life-Threatening, Hospitalization)
  Sender: FDA-Public Use
  Company Number: US-PFIZER INC-2005081522

PATIENT
  Sex: Female

DRUGS (19)
  1. VESICARE [Concomitant]
     Dosage: 5 MG, 1X/DAY
     Route: 048
  2. ATORVASTATIN CALCIUM [Suspect]
     Dosage: 80 MG, 1X/DAY; AT HS
     Route: 048
  3. NIACIN [Concomitant]
     Route: 048
  4. LISINOPRIL [Concomitant]
     Dosage: 20 MG, 2X/DAY
     Route: 048
  5. ALPHAGAN [Concomitant]
     Route: 065
  6. ALREX [Concomitant]
     Route: 065
  7. LIPITOR [Suspect]
     Indication: BLOOD CHOLESTEROL INCREASED
     Route: 048
  8. ZOLOFT [Suspect]
     Dosage: 100 MG, 1X/DAY
     Route: 048
  9. ASPIRIN [Concomitant]
     Route: 048
  10. SERTRALINE HYDROCHLORIDE [Concomitant]
     Dosage: 50 MG, 1X/DAY
     Route: 048
     Dates: end: 20120202
  11. TRUSOPT [Concomitant]
     Route: 065
  12. MAVIK [Concomitant]
     Route: 048
  13. XALATAN [Suspect]
     Indication: GLAUCOMA
     Dosage: 1 GTT, 1X/DAY
     Route: 047
     Dates: start: 20040101
  14. AMIODARONE HYDROCHLORIDE [Concomitant]
     Route: 048
  15. PLAVIX [Concomitant]
     Route: 048
  16. GALANTAMINE HYDROBROMIDE [Concomitant]
     Dosage: 8 MG, 2X/DAY
     Route: 048
  17. ATENOLOL [Concomitant]
     Dosage: 100 MG, 2X/DAY
     Route: 048
  18. WARFARIN SODIUM [Concomitant]
     Dosage: UNK MG, UNK
     Route: 048
  19. DIGOXIN [Concomitant]
     Dosage: 125 UG, UNK
     Route: 048

REACTIONS (15)
  - ACUTE MYOCARDIAL INFARCTION [None]
  - CARDIAC FAILURE CONGESTIVE [None]
  - DIABETES MELLITUS [None]
  - DEMENTIA [None]
  - EJECTION FRACTION DECREASED [None]
  - ARTERIAL OCCLUSIVE DISEASE [None]
  - OSTEOARTHRITIS [None]
  - ATRIAL FIBRILLATION [None]
  - MESENTERIC ARTERY STENOSIS [None]
  - CORONARY ARTERY DISEASE [None]
  - PERIPHERAL VASCULAR DISORDER [None]
  - BLOOD CHOLESTEROL INCREASED [None]
  - BODY HEIGHT DECREASED [None]
  - MESENTERIC OCCLUSION [None]
  - CHRONIC OBSTRUCTIVE PULMONARY DISEASE [None]
